FAERS Safety Report 6297056-0 (Version None)
Quarter: 2009Q3

REPORT INFORMATION
  Report Type: 
  Country: None (occurrence: None)
  Receive Date: 20090724
  Receipt Date: 20090707
  Transmission Date: 20100115
  Serious: Yes (Hospitalization)
  Sender: FDA-Public Use
  Company Number: 2009BI014404

PATIENT
  Age: 58 Year
  Sex: Female

DRUGS (3)
  1. TYSABRI [Suspect]
     Indication: MULTIPLE SCLEROSIS
     Dosage: 300 MG; QM; IV
     Route: 042
     Dates: start: 20090504
  2. AVONEX [Concomitant]
  3. . [Concomitant]

REACTIONS (7)
  - BRONCHITIS [None]
  - COUGH [None]
  - DRY EYE [None]
  - EYE PAIN [None]
  - OROPHARYNGEAL PAIN [None]
  - PNEUMONIA [None]
  - RESPIRATORY TRACT CONGESTION [None]
